FAERS Safety Report 8252338-8 (Version None)
Quarter: 2012Q2

REPORT INFORMATION
  Report Type: 
  Country: None (occurrence: None)
  Receive Date: 20120402
  Receipt Date: 20110516
  Transmission Date: 20120825
  Serious: No
  Sender: FDA-Public Use
  Company Number: US-ABBOTT-11P-163-0804577-00

PATIENT
  Sex: Male

DRUGS (4)
  1. TESTOSTERONE [Suspect]
     Dosage: DAILY DOSE: 5 GRAM(S), PACKETS
     Route: 062
     Dates: end: 20101001
  2. TESTOSTERONE [Suspect]
     Dosage: DAILY DOSE: 10 GRAM(S), PACKETS
     Route: 062
  3. TESTOSTERONE [Suspect]
     Dosage: DAILY DOSE: 10 GRAM(S), PACKETS
     Route: 062
     Dates: start: 20101001
  4. TESTOSTERONE [Suspect]
     Indication: BLOOD TESTOSTERONE DECREASED
     Dosage: DAILY DOSE: 5 GRAM(S), PACKETS
     Route: 062
     Dates: start: 20010101

REACTIONS (1)
  - BLOOD TESTOSTERONE ABNORMAL [None]
